FAERS Safety Report 6381728-3 (Version None)
Quarter: 2009Q3

REPORT INFORMATION
  Report Type: 
  Country: None (occurrence: None)
  Receive Date: 20090930
  Receipt Date: 20090918
  Transmission Date: 20100115
  Serious: Yes (Hospitalization)
  Sender: FDA-Public Use
  Company Number: PHHY2009BE00965

PATIENT
  Sex: Male

DRUGS (7)
  1. RASILEZ [Suspect]
     Indication: HYPERTENSION
     Dosage: 150 MG, UNK
     Route: 048
     Dates: start: 20090101, end: 20090101
  2. AMLOR [Concomitant]
  3. ACETYLSALICYLIC ACID [Concomitant]
     Dosage: UNK
  4. LASIX [Concomitant]
     Dosage: 1 TABLET
  5. MINIPRESS [Concomitant]
     Dosage: 5 MG
  6. MOXON [Concomitant]
     Dosage: 0.4 MG
  7. TENORMIN [Concomitant]
     Dosage: 25 MG

REACTIONS (7)
  - ATRIOVENTRICULAR BLOCK [None]
  - CHEST DISCOMFORT [None]
  - CORONARY ARTERY STENOSIS [None]
  - DYSPNOEA [None]
  - MITRAL VALVE INCOMPETENCE [None]
  - MYOCARDIAL INFARCTION [None]
  - PULMONARY OEDEMA [None]
